FAERS Safety Report 7544130-4 (Version None)
Quarter: 2011Q2

REPORT INFORMATION
  Report Type: 
  Country: None (occurrence: None)
  Receive Date: 20110613
  Receipt Date: 20060516
  Transmission Date: 20111010
  Serious: Yes (Hospitalization)
  Sender: FDA-Public Use
  Company Number: PHNU2006PL02013

PATIENT
  Sex: Female
  Weight: 97 kg

DRUGS (1)
  1. FLUVASTATIN SODIUM [Suspect]
     Dosage: 80 MG, QD
     Route: 048
     Dates: start: 20050510, end: 20060113

REACTIONS (4)
  - MALAISE [None]
  - DYSPNOEA [None]
  - CHEST PAIN [None]
  - BLOOD PRESSURE FLUCTUATION [None]
